FAERS Safety Report 9132722 (Version 3)
Quarter: 2013Q1

REPORT INFORMATION
  Report Type: Report from Study
  Country: CA (occurrence: CA)
  Receive Date: 20130301
  Receipt Date: 20130306
  Transmission Date: 20140127
  Serious: Yes (Hospitalization, Other)
  Sender: FDA-Public Use
  Company Number: CA-ROCHE-761792

PATIENT
  Age: 68 Year
  Sex: Female
  Weight: 78 kg

DRUGS (17)
  1. RITUXAN [Suspect]
     Indication: RHEUMATOID ARTHRITIS
     Dosage: FORM: INFUSION, FREQUENCY: DAY 1 AND DAY 15
     Route: 042
     Dates: start: 20100615, end: 20100630
  2. RITUXAN [Suspect]
     Route: 042
  3. NEXIUM [Concomitant]
  4. CELEBREX [Concomitant]
  5. GLUCOPHAGE [Concomitant]
  6. CARBOCAL D [Concomitant]
     Dosage: DRUG NAME ^CARBOCAL-D 400^
     Route: 065
  7. FOSAMAX [Concomitant]
  8. HYDRA-ZIDE [Concomitant]
     Dosage: DRUG NAME ^NOVA HYDRAZIDE^
     Route: 065
  9. EUGLUCON [Concomitant]
  10. MORPHINE [Concomitant]
     Dosage: DRUG NAME ^PMS MORPHINE^
     Route: 065
  11. TYLENOL [Concomitant]
  12. ACETAMINOPHEN [Concomitant]
     Indication: PREMEDICATION
     Route: 048
     Dates: start: 20100615, end: 20100615
  13. ACETAMINOPHEN [Concomitant]
     Route: 048
     Dates: start: 20100630, end: 20100630
  14. DIPHENHYDRAMINE [Concomitant]
     Indication: PREMEDICATION
     Route: 048
     Dates: start: 20100615, end: 20100615
  15. DIPHENHYDRAMINE [Concomitant]
     Route: 048
     Dates: start: 20100630, end: 20100630
  16. METHYLPREDNISOLONE [Concomitant]
     Route: 042
     Dates: start: 20100615
  17. PREDNISONE [Concomitant]

REACTIONS (15)
  - Synovitis [Recovered/Resolved]
  - Pyelonephritis [Recovered/Resolved]
  - Vasculitis [Not Recovered/Not Resolved]
  - Fatigue [Not Recovered/Not Resolved]
  - Diarrhoea [Not Recovered/Not Resolved]
  - Dehydration [Recovering/Resolving]
  - Oral fungal infection [Recovering/Resolving]
  - Vomiting [Recovered/Resolved]
  - Nausea [Not Recovered/Not Resolved]
  - Asthenia [Unknown]
  - Rheumatoid arthritis [Unknown]
  - Erythema nodosum [Unknown]
  - Renal disorder [Not Recovered/Not Resolved]
  - Blood urine present [Not Recovered/Not Resolved]
  - Vomiting [Recovered/Resolved]
